FAERS Safety Report 9071523 (Version 2)
Quarter: 2013Q1

REPORT INFORMATION
  Report Type: Spontaneous
  Country: US (occurrence: US)
  Receive Date: 20130129
  Receipt Date: 20130227
  Transmission Date: 20140127
  Serious: Yes (Other)
  Sender: FDA-Public Use
  Company Number: US-SHIRE-ALL1-2013-00309

PATIENT
  Age: 46 None
  Sex: Female
  Weight: 61.22 kg

DRUGS (4)
  1. VYVANSE [Suspect]
     Indication: ATTENTION DEFICIT/HYPERACTIVITY DISORDER
     Dosage: 120 MG (ONE 70 MG AND ONE 50 MG), 1X/DAY:QD
     Route: 048
     Dates: start: 2011, end: 20130101
  2. VYVANSE [Suspect]
     Dosage: 70 MG, 1X/DAY:QD
     Route: 048
     Dates: start: 20130102
  3. VYVANSE [Suspect]
     Dosage: UNK, 1X/DAY:QD
     Route: 048
     Dates: start: 201012, end: 2011
  4. KLONOPIN [Concomitant]
     Indication: PANIC ATTACK
     Dosage: 2 MG, AS REQ^D
     Route: 048

REACTIONS (19)
  - Concussion [Not Recovered/Not Resolved]
  - Depression [Not Recovered/Not Resolved]
  - Tardive dyskinesia [Not Recovered/Not Resolved]
  - Breast mass [Unknown]
  - Proctalgia [Unknown]
  - Self-injurious ideation [Not Recovered/Not Resolved]
  - Therapeutic response unexpected [Recovered/Resolved]
  - Road traffic accident [Recovered/Resolved]
  - Nonspecific reaction [Not Recovered/Not Resolved]
  - Dysuria [Not Recovered/Not Resolved]
  - Panic attack [Not Recovered/Not Resolved]
  - Condition aggravated [Not Recovered/Not Resolved]
  - Malaise [Unknown]
  - Hypersensitivity [Not Recovered/Not Resolved]
  - Abnormal loss of weight [Not Recovered/Not Resolved]
  - Prescribed overdose [Recovered/Resolved]
  - Incorrect dose administered [Recovered/Resolved]
  - Drug ineffective [Unknown]
  - Product quality issue [Unknown]
